FAERS Safety Report 7104941-6 (Version None)
Quarter: 2010Q4

REPORT INFORMATION
  Report Type: 
  Country: None (occurrence: None)
  Receive Date: 20101116
  Receipt Date: 20101104
  Transmission Date: 20110411
  Serious: Yes (Other)
  Sender: FDA-Public Use
  Company Number: US-TYCO HEALTHCARE/MALLINCKRODT-T201002157

PATIENT
  Age: 50 Year
  Sex: Female

DRUGS (8)
  1. EXALGO [Suspect]
     Indication: CANCER PAIN
     Dosage: 32 MG, QD
     Route: 048
  2. EXPECTORANT                        /00291401/ [Concomitant]
     Dosage: UNK
  3. ANTIBIOTICS [Concomitant]
     Dosage: UNK
  4. GASTROINTESTINAL DRUG [Concomitant]
     Dosage: UNK
  5. LIVER FUNCTION ENHANCER [Concomitant]
     Dosage: UNK
  6. ANTIHYPERTENSIVES [Concomitant]
     Dosage: UNK
  7. ANTIEMETICS AND ANTINAUSEANTS [Concomitant]
     Dosage: UNK
  8. PAIN KILLER [Concomitant]
     Dosage: UNK

REACTIONS (5)
  - ASTHENIA [None]
  - COLD SWEAT [None]
  - DIZZINESS [None]
  - HEPATIC ENZYME INCREASED [None]
  - TREMOR [None]
